FAERS Safety Report 4533743-X (Version None)
Quarter: 2004Q4

REPORT INFORMATION
  Report Type: 
  Country: None (occurrence: None)
  Receive Date: 20041221
  Receipt Date: 20040826
  Transmission Date: 20050328
  Serious: Yes (Hospitalization, Other)
  Sender: FDA-Public Use
  Company Number: US-ABBOTT-04P-163-0283253-00

PATIENT
  Age: 67 Year
  Sex: Male
  Weight: 109 kg

DRUGS (3)
  1. HYTRIN [Suspect]
     Indication: BENIGN PROSTATIC HYPERPLASIA
     Route: 048
     Dates: end: 20041101
  2. HYTRIN [Suspect]
     Route: 048
     Dates: start: 20041101
  3. ALFUZOSIN HYDROCHLORIDE [Concomitant]
     Indication: BENIGN PROSTATIC HYPERPLASIA
     Route: 048
     Dates: start: 20041101

REACTIONS (4)
  - APPENDICITIS PERFORATED [None]
  - APPENDIX DISORDER [None]
  - DYSPEPSIA [None]
  - HYPOTENSION [None]
